FAERS Safety Report 21340057 (Version 1)
Quarter: 2022Q3

REPORT INFORMATION
  Report Type: Spontaneous
  Country: US (occurrence: US)
  Receive Date: 20220915
  Receipt Date: 20220915
  Transmission Date: 20221027
  Serious: Yes (Hospitalization, Other)
  Sender: FDA-Public Use
  Company Number: US-BRISTOL-MYERS SQUIBB COMPANY-2022-105545

PATIENT
  Age: 43 Year
  Sex: Male
  Weight: 125.19 kg

DRUGS (2)
  1. OPDIVO [Suspect]
     Active Substance: NIVOLUMAB
     Indication: Product used for unknown indication
     Dosage: DOSE : OPDIVO 393MG YERVOY 131MG;     FREQ : OPDIVO EVERY 2 WEEKS, YERVOY EVERY 6 WEEKS
     Route: 042
  2. YERVOY [Suspect]
     Active Substance: IPILIMUMAB
     Indication: Product used for unknown indication
     Dosage: DOSE : OPDIVO 393MG YERVOY 131MG;     FREQ : OPDIVO EVERY 2 WEEKS, YERVOY EVERY 6 WEEKS
     Route: 042

REACTIONS (2)
  - COVID-19 [Unknown]
  - Lung neoplasm malignant [Unknown]

NARRATIVE: CASE EVENT DATE: 20220903
